FAERS Safety Report 10108770 (Version 2)
Quarter: 2014Q2

REPORT INFORMATION
  Report Type: Spontaneous
  Country: JP (occurrence: JP)
  Receive Date: 20140425
  Receipt Date: 20140425
  Transmission Date: 20141212
  Serious: Yes (Other)
  Sender: FDA-Public Use
  Company Number: JP-BRISTOL-MYERS SQUIBB COMPANY-19650944

PATIENT
  Age: 45 Year
  Sex: Female

DRUGS (6)
  1. BYDUREON [Suspect]
     Indication: DIABETES MELLITUS
     Route: 058
     Dates: start: 20130905
  2. CYMBALTA [Suspect]
     Route: 048
     Dates: start: 20130905, end: 20131114
  3. AZILSARTAN MEDOXOMIL [Concomitant]
     Route: 048
     Dates: start: 20131031, end: 20131114
  4. URSO [Concomitant]
     Route: 048
     Dates: start: 20131114
  5. METGLUCO [Concomitant]
  6. AMARYL [Concomitant]
     Dosage: 0.5MG

REACTIONS (2)
  - Hepatic function abnormal [Recovering/Resolving]
  - Injection site induration [Recovering/Resolving]
